FAERS Safety Report 21908013 (Version 1)
Quarter: 2023Q1

REPORT INFORMATION
  Report Type: Report from Study
  Country: BR (occurrence: BR)
  Receive Date: 20230125
  Receipt Date: 20230125
  Transmission Date: 20230417
  Serious: Yes (Other)
  Sender: FDA-Public Use
  Company Number: BR-002147023-NVSC2023BR013955

PATIENT
  Age: 81 Year
  Sex: Male

DRUGS (1)
  1. ENTRESTO [Suspect]
     Active Substance: SACUBITRIL\VALSARTAN
     Indication: Product used for unknown indication
     Dosage: 200 MG
     Route: 065

REACTIONS (9)
  - Parkinson^s disease [Unknown]
  - Syncope [Unknown]
  - Loss of consciousness [Unknown]
  - Speech disorder [Unknown]
  - Hypoacusis [Unknown]
  - Malaise [Unknown]
  - Tremor [Unknown]
  - Cardiac disorder [Unknown]
  - Illness [Unknown]
